FAERS Safety Report 5223072-3 (Version None)
Quarter: 2007Q1

REPORT INFORMATION
  Report Type: 
  Country: None (occurrence: None)
  Receive Date: 20070129
  Receipt Date: 20070119
  Transmission Date: 20070707
  Serious: Yes (Disabling)
  Sender: FDA-Public Use
  Company Number: BR-PFIZER INC-2007005161

PATIENT
  Sex: Male

DRUGS (3)
  1. NORVASC [Suspect]
     Route: 048
     Dates: start: 20060101, end: 20060101
  2. AZITHROMYCIN [Concomitant]
     Route: 048
     Dates: start: 20060101, end: 20060101
  3. CARBOCISTEINE [Concomitant]
     Route: 048
     Dates: start: 20060101, end: 20060101

REACTIONS (5)
  - CARDIAC MURMUR [None]
  - HEADACHE [None]
  - MEDICATION ERROR [None]
  - PYREXIA [None]
  - SWELLING [None]
